FAERS Safety Report 25003500 (Version 2)
Quarter: 2025Q1

REPORT INFORMATION
  Report Type: Spontaneous
  Country: US (occurrence: US)
  Receive Date: 20250224
  Receipt Date: 20250318
  Transmission Date: 20250409
  Serious: Yes (Other)
  Sender: SYMOGEN
  Company Number: US-PARTNER THERAPEUTICS-2025PTX00011

PATIENT
  Sex: Male

DRUGS (1)
  1. LEUKINE [Suspect]
     Active Substance: SARGRAMOSTIM
     Indication: Alveolar proteinosis

REACTIONS (5)
  - Pneumonia [Recovered/Resolved]
  - Pulmonary congestion [Recovered/Resolved]
  - Cough [Recovered/Resolved]
  - Product dose omission issue [Recovered/Resolved]
  - Off label use [Not Recovered/Not Resolved]

NARRATIVE: CASE EVENT DATE: 20250101
